FAERS Safety Report 7448112-2 (Version None)
Quarter: 2011Q2

REPORT INFORMATION
  Report Type: 
  Country: None (occurrence: None)
  Receive Date: 20110429
  Receipt Date: 20100308
  Transmission Date: 20111010
  Serious: No
  Sender: FDA-Public Use
  Company Number: US-ASTRAZENECA-2010SE09902

PATIENT
  Age: 87 Year
  Sex: Male

DRUGS (2)
  1. NEXIUM [Suspect]
     Route: 048
     Dates: start: 20080101
  2. IMODIUM [Concomitant]

REACTIONS (2)
  - FLATULENCE [None]
  - INCORRECT DRUG ADMINISTRATION DURATION [None]
